FAERS Safety Report 6585369 (Version 5)
Quarter: 2013Q2

REPORT INFORMATION
  Report Type: Spontaneous
  Country: US (occurrence: US)
  Receive Date: 20080316
  Receipt Date: 20130530
  Transmission Date: 20140414
  Serious: Yes (Other)
  Sender: FDA-Public Use
  Company Number: US-JNJFOC-20080301682

PATIENT
  Sex: 0

DRUGS (1)
  1. INFLIXIMAB [Suspect]
     Indication: FOETAL EXPOSURE DURING PREGNANCY
     Route: 042

REACTIONS (4)
  - Gastrooesophageal reflux disease [Unknown]
  - Immunosuppressant drug level increased [Recovered/Resolved]
  - Foetal exposure during pregnancy [Recovered/Resolved]
  - Oral candidiasis [Unknown]
